FAERS Safety Report 7352064-3 (Version None)
Quarter: 2011Q1

REPORT INFORMATION
  Report Type: 
  Country: None (occurrence: None)
  Receive Date: 20110315
  Receipt Date: 20110309
  Transmission Date: 20110831
  Serious: Yes (Death, Life-Threatening)
  Sender: FDA-Public Use
  Company Number: JP-ASTELLAS-2011JP000979

PATIENT
  Sex: Male
  Weight: 37 kg

DRUGS (19)
  1. HAPTOGLOBINS [Concomitant]
     Dosage: 2000 IU, UID/QD
     Route: 041
     Dates: start: 20090225, end: 20090226
  2. FUNGUARD [Concomitant]
     Dosage: UNK
     Route: 041
     Dates: start: 20090312, end: 20090319
  3. METHOTREXATE [Suspect]
     Indication: PREMEDICATION
     Dosage: 9.7 MG, UID/QD
     Route: 042
     Dates: start: 20090227, end: 20090304
  4. ITRIZOLE [Concomitant]
     Dosage: 9.5 ML, BID
     Route: 048
     Dates: start: 20090219, end: 20090318
  5. ZOVIRAX [Concomitant]
     Dosage: 200 MG, TID
     Route: 048
     Dates: start: 20090226, end: 20090318
  6. BROACT [Concomitant]
     Dosage: 1000 MG, TID
     Route: 041
     Dates: start: 20090213, end: 20090308
  7. LYMPHOGLOBULINE [Concomitant]
     Dosage: 370 MG, UID/QD
     Route: 041
     Dates: start: 20090223, end: 20090224
  8. ZYVOX [Concomitant]
     Dosage: 400 MG, UID/QD
     Route: 041
     Dates: start: 20090313, end: 20090319
  9. ZOVIRAX [Concomitant]
     Dosage: 250 MG, TID
     Route: 041
     Dates: start: 20090312, end: 20090319
  10. AMBISOME [Concomitant]
     Dosage: 200 MG, UID/QD
     Route: 041
     Dates: start: 20090314, end: 20090319
  11. URSO 250 [Concomitant]
     Dosage: 100 MG, TID
     Route: 048
     Dates: start: 20090217, end: 20090318
  12. BAKTAR [Concomitant]
     Dosage: 4 G, 3XWEEKLY
     Route: 048
     Dates: start: 20080328, end: 20090318
  13. PROGRAF [Suspect]
     Indication: PREMEDICATION
     Dosage: 0.45 MG, CONTINUOUS
     Route: 041
     Dates: start: 20090225, end: 20090315
  14. MINOCYCLINE HCL [Concomitant]
     Indication: SEPSIS
     Dosage: 70 MG, BID
     Route: 041
     Dates: start: 20090309, end: 20090312
  15. FLUDARA [Concomitant]
     Dosage: 23 MG, UID/QD
     Route: 041
     Dates: start: 20090217, end: 20090222
  16. ALKERAN [Concomitant]
     Dosage: 90 MG, UID/QD
     Route: 041
     Dates: start: 20090222, end: 20090222
  17. MEROPEN [Concomitant]
     Indication: SEPSIS
     Dosage: 500 MG, BID
     Route: 041
     Dates: start: 20090309, end: 20090309
  18. SOLU-MEDROL [Suspect]
     Indication: PREMEDICATION
     Dosage: 18 MG, BID
     Route: 041
     Dates: start: 20090227, end: 20090319
  19. GATIFLOXACIN [Concomitant]
     Dosage: 100 MG, BID
     Route: 048
     Dates: start: 20090219, end: 20090318

REACTIONS (3)
  - STAPHYLOCOCCAL SEPSIS [None]
  - FUSARIUM INFECTION [None]
  - ENTEROCOCCAL SEPSIS [None]
